FAERS Safety Report 19275636 (Version 1)
Quarter: 2021Q2

REPORT INFORMATION
  Report Type: Report from Study
  Country: US (occurrence: US)
  Receive Date: 20210519
  Receipt Date: 20210519
  Transmission Date: 20210717
  Serious: No
  Sender: FDA-Public Use
  Company Number: US-VANDA PHARMACEUTICALS, INC-2020ILOUS001813

PATIENT
  Sex: Male

DRUGS (1)
  1. FANAPT [Suspect]
     Active Substance: ILOPERIDONE
     Indication: SCHIZOAFFECTIVE DISORDER
     Dosage: UNK
     Dates: start: 20180701

REACTIONS (1)
  - Ejaculation disorder [Unknown]
